FAERS Safety Report 6504612-0 (Version None)
Quarter: 2009Q4

REPORT INFORMATION
  Report Type: 
  Country: None (occurrence: None)
  Receive Date: 20091215
  Receipt Date: 20091202
  Transmission Date: 20100525
  Serious: Yes (Death, Hospitalization)
  Sender: FDA-Public Use
  Company Number: 2009AC000473

PATIENT
  Age: 79 Year
  Sex: Male

DRUGS (2)
  1. DIGOXIN [Suspect]
     Indication: CARDIAC DISORDER
     Dosage: 0.125 MG; QD; PO
     Route: 048
  2. ARICEPT [Concomitant]

REACTIONS (5)
  - ABASIA [None]
  - ASTHENIA [None]
  - MALAISE [None]
  - MULTI-ORGAN FAILURE [None]
  - SEPSIS [None]
